FAERS Safety Report 10055290 (Version 2)
Quarter: 2014Q2

REPORT INFORMATION
  Report Type: Spontaneous
  Country: CA (occurrence: CA)
  Receive Date: 20140403
  Receipt Date: 20140403
  Transmission Date: 20141212
  Serious: No
  Sender: FDA-Public Use
  Company Number: CA-009507513-1403CAN000987

PATIENT
  Age: 77 Year
  Sex: Male

DRUGS (3)
  1. NITRO-DUR [Suspect]
     Dosage: 1 DF, FOR 48 HOURS(STRENGTH: 0.6MG/HR)
     Route: 062
     Dates: start: 20140226, end: 20140228
  2. NITRO-DUR [Suspect]
     Dosage: 1 PATCH, FOR 24 HOURS(STRENGTH: 0.6MG/HR)
     Route: 062
     Dates: start: 20140227, end: 20140228
  3. NITRO-DUR [Suspect]
     Dosage: I PATCH 0.6 MG/HR EVERY 24 HOURS
     Route: 062

REACTIONS (2)
  - Overdose [Unknown]
  - Incorrect drug administration duration [Unknown]
